FAERS Safety Report 5058149-9 (Version None)
Quarter: 2006Q3

REPORT INFORMATION
  Report Type: 
  Country: None (occurrence: None)
  Receive Date: 20060721
  Receipt Date: 20060619
  Transmission Date: 20061208
  Serious: Yes (Other)
  Sender: FDA-Public Use
  Company Number: FR-MERCK-0606USA04450

PATIENT
  Age: 48 Year
  Sex: Male

DRUGS (3)
  1. HYDROCORTONE [Suspect]
     Route: 048
  2. PREDNISOLONE [Suspect]
     Route: 065
  3. FLUDROCORTISONE [Concomitant]
     Indication: HORMONE REPLACEMENT THERAPY
     Route: 065

REACTIONS (7)
  - ASTHENIA [None]
  - BALANCE DISORDER [None]
  - EYE INFECTION TOXOPLASMAL [None]
  - HYPONATRAEMIA [None]
  - MENINGITIS CRYPTOCOCCAL [None]
  - TOXOPLASMOSIS [None]
  - VITRITIS [None]
